FAERS Safety Report 6963644-9 (Version None)
Quarter: 2010Q3

REPORT INFORMATION
  Report Type: 
  Country: None (occurrence: None)
  Receive Date: 20100902
  Receipt Date: 20100825
  Transmission Date: 20110219
  Serious: Yes (Other)
  Sender: FDA-Public Use
  Company Number: JP-BAXTER-2010BH022508

PATIENT
  Age: 30 Year
  Sex: Male

DRUGS (6)
  1. CYCLOPHOSPHAMIDE [Suspect]
     Indication: RHABDOID TUMOUR OF THE KIDNEY
     Route: 065
  2. IFOSFAMIDE [Suspect]
     Indication: RHABDOID TUMOUR OF THE KIDNEY
     Route: 065
  3. CARBOPLATIN [Suspect]
     Indication: RHABDOID TUMOUR OF THE KIDNEY
     Route: 065
  4. ETOPOSIDE [Suspect]
     Indication: RHABDOID TUMOUR OF THE KIDNEY
     Route: 065
  5. VINCRISTINE SULFATE [Suspect]
     Indication: RHABDOID TUMOUR OF THE KIDNEY
     Route: 065
  6. DOXORUBICIN HCL [Suspect]
     Indication: RHABDOID TUMOUR OF THE KIDNEY
     Route: 065

REACTIONS (1)
  - RENAL FAILURE ACUTE [None]
